FAERS Safety Report 25101838 (Version 1)
Quarter: 2025Q1

REPORT INFORMATION
  Report Type: Spontaneous
  Country: IT (occurrence: IT)
  Receive Date: 20250320
  Receipt Date: 20250320
  Transmission Date: 20250408
  Serious: Yes (Hospitalization, Other)
  Sender: TAKEDA
  Company Number: IT-GERMAN-ITA/2025/03/003354

PATIENT
  Age: 52 Year
  Sex: Male

DRUGS (7)
  1. HUMAN IMMUNOGLOBULIN G [Suspect]
     Active Substance: HUMAN IMMUNOGLOBULIN G
     Indication: Cytokine storm
  2. HUMAN IMMUNOGLOBULIN G [Suspect]
     Active Substance: HUMAN IMMUNOGLOBULIN G
     Indication: Herpes virus infection
  3. RITUXIMAB [Suspect]
     Active Substance: RITUXIMAB
     Indication: Herpes virus infection
  4. RITUXIMAB [Suspect]
     Active Substance: RITUXIMAB
     Indication: Cytokine storm
  5. EVEROLIMUS [Suspect]
     Active Substance: EVEROLIMUS
     Indication: Immunosuppressant drug therapy
  6. FOSCARNET [Suspect]
     Active Substance: FOSCARNET
     Indication: Herpes virus infection
  7. FOSCARNET [Suspect]
     Active Substance: FOSCARNET
     Indication: Cytokine storm

REACTIONS (2)
  - Condition aggravated [Unknown]
  - Drug ineffective for unapproved indication [Unknown]
